FAERS Safety Report 5856387-6 (Version None)
Quarter: 2008Q3

REPORT INFORMATION
  Report Type: 
  Country: None (occurrence: None)
  Receive Date: 20080825
  Receipt Date: 20080820
  Transmission Date: 20090109
  Serious: No
  Sender: FDA-Public Use
  Company Number: JP-ASTRAZENECA-2008AP05554

PATIENT
  Age: 61 Year
  Sex: Male
  Weight: 42 kg

DRUGS (13)
  1. IRESSA [Suspect]
     Route: 048
     Dates: start: 20080522
  2. IRESSA [Suspect]
     Route: 048
     Dates: start: 20080702
  3. AMOBAN [Concomitant]
     Indication: INSOMNIA
     Dosage: AS REQUIRED
     Route: 048
     Dates: start: 20080523
  4. RINDERON-V [Concomitant]
     Indication: RASH
     Dosage: OPTIMAL DOSE
     Route: 003
     Dates: start: 20080528
  5. ZILDASAC [Concomitant]
     Indication: RASH
     Dosage: OPTIMAL DOSE
     Route: 003
     Dates: start: 20080602
  6. MINOCYCLINE HCL [Concomitant]
     Indication: FOLLICULITIS
     Route: 048
     Dates: start: 20080609
  7. ISOBIDE [Concomitant]
     Indication: INTRACRANIAL PRESSURE INCREASED
     Route: 048
     Dates: start: 20080609
  8. PANTOSIN [Concomitant]
     Indication: CONSTIPATION
     Route: 048
     Dates: start: 20080610
  9. MAGMITT [Concomitant]
     Indication: CONSTIPATION
     Route: 048
     Dates: start: 20080610
  10. DEXALTIN [Concomitant]
     Indication: STOMATITIS
     Route: 003
     Dates: start: 20080613
  11. HIRUDOID [Concomitant]
     Indication: XEROSIS
     Dosage: OPTIMAL DOSE (TOTAL DOSE 50 G)
     Route: 003
     Dates: start: 20080813
  12. MYSER [Concomitant]
     Indication: XEROSIS
     Dosage: OPTIMAL DOSE
     Route: 003
     Dates: start: 20080813
  13. RESTAMIN [Concomitant]
     Indication: DERMATITIS
     Dosage: OPTIMAL DOSE
     Route: 003
     Dates: start: 20080813

REACTIONS (2)
  - DERMATITIS ACNEIFORM [None]
  - HEPATIC ENZYME INCREASED [None]
